FAERS Safety Report 9917331 (Version 2)
Quarter: 2014Q1

REPORT INFORMATION
  Report Type: Spontaneous
  Country: US (occurrence: US)
  Receive Date: 20140221
  Receipt Date: 20140221
  Transmission Date: 20141002
  Serious: Yes (Other)
  Sender: FDA-Public Use
  Company Number: US-CELGENEUS-163-21660-13072326

PATIENT
  Sex: 0

DRUGS (6)
  1. ABRAXANE [Suspect]
     Indication: SQUAMOUS CELL CARCINOMA OF HEAD AND NECK
     Dosage: 30, 45, 60 AND 80 MG/M2 WERE EXPLORED
     Route: 065
  2. ABRAXANE [Suspect]
     Route: 065
  3. ABRAXANE [Suspect]
     Route: 065
  4. ABRAXANE [Suspect]
     Route: 065
  5. CETUXIMAB [Suspect]
     Indication: SQUAMOUS CELL CARCINOMA OF HEAD AND NECK
     Route: 065
  6. CETUXIMAB [Suspect]
     Route: 065

REACTIONS (38)
  - Cardiac failure congestive [Unknown]
  - Cerebrovascular accident [Unknown]
  - Mucosal inflammation [Unknown]
  - Peripheral sensory neuropathy [Unknown]
  - Dehydration [Unknown]
  - Oropharyngeal pain [Unknown]
  - Pneumonia [Unknown]
  - Lymphopenia [Unknown]
  - Anaemia [Unknown]
  - Fatigue [Unknown]
  - Nausea [Unknown]
  - Weight decreased [Unknown]
  - Haemoglobin decreased [Unknown]
  - Dysphagia [Unknown]
  - White blood cell count decreased [Unknown]
  - Dermatitis acneiform [Unknown]
  - Radiation skin injury [Unknown]
  - Infection [Unknown]
  - Exfoliative rash [Unknown]
  - Blood sodium decreased [Unknown]
  - Blood magnesium decreased [Unknown]
  - Blood phosphorus decreased [Unknown]
  - Blood potassium decreased [Unknown]
  - Confusional state [Unknown]
  - Vomiting [Unknown]
  - Blood albumin decreased [Unknown]
  - International normalised ratio increased [Unknown]
  - Blood glucose increased [Unknown]
  - Constipation [Unknown]
  - Pyrexia [Unknown]
  - Headache [Unknown]
  - Cough [Unknown]
  - Platelet count decreased [Unknown]
  - Dysgeusia [Unknown]
  - Diarrhoea [Unknown]
  - Neck pain [Unknown]
  - Aspartate aminotransferase increased [Unknown]
  - Alanine aminotransferase increased [Unknown]
